FAERS Safety Report 5512325-7 (Version None)
Quarter: 2007Q4

REPORT INFORMATION
  Report Type: 
  Country: None (occurrence: None)
  Receive Date: 20071112
  Receipt Date: 20071026
  Transmission Date: 20080405
  Serious: No
  Sender: FDA-Public Use
  Company Number: A0691104A

PATIENT
  Sex: Female

DRUGS (2)
  1. VERAMYST [Suspect]
     Dates: start: 20071001
  2. FLONASE [Suspect]
     Dosage: 2SPR TWICE PER DAY
     Dates: start: 20071001

REACTIONS (3)
  - DRUG EFFECT DECREASED [None]
  - DRUG INEFFECTIVE [None]
  - FEELING ABNORMAL [None]
